FAERS Safety Report 21796699 (Version 1)
Quarter: 2022Q4

REPORT INFORMATION
  Report Type: Spontaneous
  Country: US (occurrence: None)
  Receive Date: 20221230
  Receipt Date: 20221230
  Transmission Date: 20230112
  Serious: No
  Sender: FDA-Public Use
  Company Number: 2022A418638

PATIENT
  Sex: Male

DRUGS (1)
  1. SYMBICORT [Suspect]
     Active Substance: BUDESONIDE\FORMOTEROL FUMARATE DIHYDRATE
     Indication: Asthma
     Dosage: 160/4.5, 2 PUFFS TWO TIMES A DAY
     Route: 055

REACTIONS (4)
  - Asthma [Unknown]
  - Adverse drug reaction [Unknown]
  - Off label use [Unknown]
  - Intentional product use issue [Unknown]
